FAERS Safety Report 4458131-6 (Version None)
Quarter: 2004Q3

REPORT INFORMATION
  Report Type: 
  Country: None (occurrence: None)
  Receive Date: 20040924
  Receipt Date: 20040708
  Transmission Date: 20050211
  Serious: Yes (Life-Threatening)
  Sender: FDA-Public Use
  Company Number: FR-GLAXOSMITHKLINE-B0338492A

PATIENT
  Age: 40 Year
  Sex: Female
  Weight: 53 kg

DRUGS (1)
  1. ZYBAN [Suspect]
     Dosage: 150MG SEE DOSAGE TEXT
     Route: 048
     Dates: start: 20030601, end: 20030601

REACTIONS (13)
  - ANOREXIA [None]
  - ARTHRALGIA [None]
  - ASTHENIA [None]
  - BLOOD IMMUNOGLOBULIN E INCREASED [None]
  - COUGH [None]
  - DYSPHAGIA [None]
  - DYSPNOEA [None]
  - INSOMNIA [None]
  - JOINT SWELLING [None]
  - OESOPHAGEAL SPASM [None]
  - PRURITUS [None]
  - SERUM SICKNESS [None]
  - URTICARIA GENERALISED [None]
